FAERS Safety Report 8119212-9 (Version None)
Quarter: 2012Q1

REPORT INFORMATION
  Report Type: 
  Country: None (occurrence: None)
  Receive Date: 20120207
  Receipt Date: 20120125
  Transmission Date: 20120608
  Serious: Yes (Hospitalization)
  Sender: FDA-Public Use
  Company Number: SE-ROCHE-1036400

PATIENT
  Sex: Female

DRUGS (3)
  1. LUCENTIS [Suspect]
     Indication: AGE-RELATED MACULAR DEGENERATION
     Route: 050
     Dates: start: 20111115
  2. ESIDRIX [Concomitant]
  3. PREDNISOLONE [Concomitant]

REACTIONS (3)
  - SINUS TACHYCARDIA [None]
  - HYPERTENSION [None]
  - CEREBRAL INFARCTION [None]
